FAERS Safety Report 13625827 (Version 2)
Quarter: 2017Q2

REPORT INFORMATION
  Report Type: Spontaneous
  Country: FR (occurrence: FR)
  Receive Date: 20170607
  Receipt Date: 20170622
  Transmission Date: 20170830
  Serious: Yes (Death, Life-Threatening, Hospitalization)
  Sender: FDA-Public Use
  Company Number: FR-PFIZER INC-2017244676

PATIENT
  Age: 56 Year
  Sex: Female

DRUGS (6)
  1. POLARAMINE [Concomitant]
     Active Substance: DEXCHLORPHENIRAMINE MALEATE
  2. CARBOPLATINE HOSPIRA [Suspect]
     Active Substance: CARBOPLATIN
     Indication: OVARIAN CANCER
     Dosage: 590 MG, SINGLE
     Route: 041
     Dates: start: 20170217, end: 20170217
  3. ZOPHREN [Concomitant]
     Active Substance: ONDANSETRON
  4. DEXAMETHASONE. [Suspect]
     Active Substance: DEXAMETHASONE
     Indication: OVARIAN CANCER
     Dosage: 20 MG, SINGLE
     Route: 042
     Dates: start: 20170217, end: 20170217
  5. RANITIDINE HYDROCHLORIDE. [Concomitant]
     Active Substance: RANITIDINE HYDROCHLORIDE
     Dosage: UNK UNK, SINGLE
     Route: 041
  6. PACLITAXEL HOSPIRA [Suspect]
     Active Substance: PACLITAXEL
     Indication: OVARIAN CANCER
     Dosage: 312 MG, SINGLE
     Route: 041
     Dates: start: 20170217, end: 20170217

REACTIONS (3)
  - Pancytopenia [Fatal]
  - Septic shock [Fatal]
  - Disseminated intravascular coagulation [Fatal]

NARRATIVE: CASE EVENT DATE: 20170221
